FAERS Safety Report 24439752 (Version 2)
Quarter: 2024Q4

REPORT INFORMATION
  Report Type: Spontaneous
  Country: US (occurrence: US)
  Receive Date: 20241015
  Receipt Date: 20241107
  Transmission Date: 20250115
  Serious: Yes (Other)
  Sender: MALLINCKRODT
  Company Number: US-MALLINCKRODT-MNK202406155

PATIENT
  Age: 63 Year
  Sex: Male

DRUGS (24)
  1. CORTICOTROPIN [Suspect]
     Active Substance: CORTICOTROPIN
     Indication: Nephrotic syndrome
     Route: 058
  2. CORTICOTROPIN [Suspect]
     Active Substance: CORTICOTROPIN
  3. TRAMADOL HCL [Concomitant]
     Active Substance: TRAMADOL HYDROCHLORIDE
     Dosage: UNKNOWN
  4. TRIHEXYPHENIDYL [Concomitant]
     Active Substance: TRIHEXYPHENIDYL
     Dosage: UNKNOWN
  5. TOUJEO [Concomitant]
     Active Substance: INSULIN GLARGINE
     Dosage: 300 UNITS
  6. METOPROLOL SUCCINATE [Concomitant]
     Active Substance: METOPROLOL SUCCINATE
     Dosage: UNKNOWN
  7. ASPIRIN [Concomitant]
     Active Substance: ASPIRIN
     Dosage: UNKNOWN
  8. BUPROPION HYDROCHLORIDE [Concomitant]
     Active Substance: BUPROPION HYDROCHLORIDE
     Dosage: UNKNOWN
  9. CENTRUM MINIS MEN 50+ [Concomitant]
     Dosage: UNKNOWN
  10. COENZYME Q10 [Concomitant]
     Active Substance: DIETARY SUPPLEMENT\UBIDECARENONE
     Dosage: UNKNOWN
  11. IRON [Concomitant]
     Active Substance: IRON
     Dosage: UNKNOWN
     Route: 048
  12. JARDIANCE [Concomitant]
     Active Substance: EMPAGLIFLOZIN
     Dosage: UNKNOWN
  13. LEVOTHYROXINE [Concomitant]
     Active Substance: LEVOTHYROXINE
     Dosage: UNKNOWN
  14. LISINOPRIL [Concomitant]
     Active Substance: LISINOPRIL
     Dosage: UNKNOWN
  15. LYRICA [Concomitant]
     Active Substance: PREGABALIN
     Dosage: UNKNOWN
  16. MIRALAX [Concomitant]
     Active Substance: POLYETHYLENE GLYCOL 3350
     Dosage: UNKNOWN
  17. OCUVITE [Concomitant]
     Active Substance: VITAMINS
     Dosage: UNKNOWN
  18. OLANZAPINE [Concomitant]
     Active Substance: OLANZAPINE
     Dosage: UNKNOWN
  19. REPATHA [Concomitant]
     Active Substance: EVOLOCUMAB
     Dosage: UNKNOWN
  20. TRAZODONE HCL [Concomitant]
     Active Substance: TRAZODONE HYDROCHLORIDE
     Dosage: UNKNOWN
  21. VITAMIN D [Concomitant]
     Active Substance: VITAMIN D NOS
     Dosage: UNKNOWN
  22. BENZTROPINE [Concomitant]
     Active Substance: BENZTROPINE
     Dosage: UNKNOWN
  23. ESCITALOPRAM [Concomitant]
     Active Substance: ESCITALOPRAM OXALATE
     Dosage: UNKNOWN
  24. METHOCARBAMOL [Concomitant]
     Active Substance: METHOCARBAMOL
     Dosage: UNKNOWN

REACTIONS (7)
  - Compression fracture [Unknown]
  - Pain [Not Recovered/Not Resolved]
  - Anxiety [Not Recovered/Not Resolved]
  - Fall [Unknown]
  - Dysphonia [Not Recovered/Not Resolved]
  - Depression [Not Recovered/Not Resolved]
  - Insomnia [Not Recovered/Not Resolved]

NARRATIVE: CASE EVENT DATE: 20240801
